FAERS Safety Report 12600398 (Version 1)
Quarter: 2016Q3

REPORT INFORMATION
  Report Type: Spontaneous
  Country: US (occurrence: US)
  Receive Date: 20160727
  Receipt Date: 20160727
  Transmission Date: 20161109
  Serious: No
  Sender: FDA-Public Use
  Company Number: US-EISAI MEDICAL RESEARCH-EC-2016-018847

PATIENT
  Sex: Male

DRUGS (2)
  1. BELVIQ [Suspect]
     Active Substance: LORCASERIN HYDROCHLORIDE
     Indication: WEIGHT DECREASED
     Dosage: UNKNOWN
     Route: 048
     Dates: start: 201602, end: 2016
  2. BELVIQ [Suspect]
     Active Substance: LORCASERIN HYDROCHLORIDE
     Dosage: WEANED OFF, TOOK 1 PILL A DAY AND THEN 1 PILL EVERY OTHER DAY
     Route: 048
     Dates: start: 2016, end: 201607

REACTIONS (2)
  - Peripheral swelling [Recovered/Resolved]
  - Mood swings [Recovered/Resolved]

NARRATIVE: CASE EVENT DATE: 2016
